FAERS Safety Report 5133710-1 (Version None)
Quarter: 2006Q4

REPORT INFORMATION
  Report Type: 
  Country: None (occurrence: None)
  Receive Date: 20061024
  Receipt Date: 20061013
  Transmission Date: 20070319
  Serious: Yes (Hospitalization)
  Sender: FDA-Public Use
  Company Number: CA-ROCHE-467089

PATIENT
  Age: 50 Year
  Sex: Female
  Weight: 62.5 kg

DRUGS (7)
  1. DACLIZUMAB [Suspect]
     Indication: MULTIPLE SCLEROSIS
     Route: 058
     Dates: start: 20060109, end: 20060530
  2. COLACE [Concomitant]
     Dates: start: 20060903
  3. AMITRIPTYLINE HCL [Concomitant]
     Dates: start: 20060418
  4. ZYPREXA [Concomitant]
     Dates: start: 20060805
  5. LIPITOR [Concomitant]
     Dates: start: 20060802
  6. IBUPROFEN [Concomitant]
     Dates: start: 20060824
  7. LYRICA [Concomitant]
     Dates: start: 20060824

REACTIONS (7)
  - ABDOMINAL PAIN [None]
  - CLOSTRIDIAL INFECTION [None]
  - DIARRHOEA [None]
  - HYPOAESTHESIA [None]
  - LETHARGY [None]
  - PYREXIA [None]
  - RECTOCELE [None]
